FAERS Safety Report 4512518-1 (Version None)
Quarter: 2004Q4

REPORT INFORMATION
  Report Type: 
  Country: None (occurrence: None)
  Receive Date: 20041124
  Receipt Date: 20041110
  Transmission Date: 20050328
  Serious: Yes (Death, Other)
  Sender: FDA-Public Use
  Company Number: USA040979383

PATIENT
  Age: 38 Year
  Sex: Male

DRUGS (2)
  1. CYMBALTA [Suspect]
     Indication: MAJOR DEPRESSION
     Dosage: 60 MG DAY
     Dates: end: 20040920
  2. ZYPREXA [Suspect]
     Indication: BIPOLAR DISORDER
     Dosage: 20 MG DAY
     Dates: end: 20040920

REACTIONS (2)
  - CARDIOMYOPATHY [None]
  - MEDICATION ERROR [None]
